FAERS Safety Report 9312980 (Version 2)
Quarter: 2013Q3

REPORT INFORMATION
  Report Type: Spontaneous
  Country: US (occurrence: US)
  Receive Date: 20130528
  Receipt Date: 20130828
  Transmission Date: 20140515
  Serious: No
  Sender: FDA-Public Use
  Company Number: US-ABBOTT-13P-163-1070186-00

PATIENT
  Age: 80 Year
  Sex: Male
  Weight: 64.92 kg

DRUGS (20)
  1. ANDROGEL [Suspect]
     Indication: BLOOD TESTOSTERONE DECREASED
     Dosage: PUMP
     Route: 061
     Dates: start: 20121208, end: 201303
  2. ANDROGEL [Suspect]
     Route: 061
     Dates: start: 201303
  3. METOPROLOL [Concomitant]
     Indication: CARDIAC DISORDER
  4. ASPIRIN [Concomitant]
     Indication: BLOOD DISORDER
  5. LEVOXYL [Concomitant]
     Indication: HYPOTHYROIDISM
  6. TYLENOL ARTHRITIS [Concomitant]
     Indication: ARTHRITIS
  7. TYLENOL ARTHRITIS [Concomitant]
     Indication: BACK PAIN
  8. CO Q 10 [Concomitant]
     Indication: CARDIAC DISORDER
  9. CRANBERRY [Concomitant]
     Indication: PRODUCT USED FOR UNKNOWN INDICATION
  10. VITAMINS NOS [Concomitant]
     Indication: SUPPLEMENTATION THERAPY
  11. SIMVASTATIN [Concomitant]
     Indication: BLOOD CHOLESTEROL INCREASED
  12. OMEGA 3 [Concomitant]
     Indication: CARDIAC DISORDER
  13. MAGNESIUM [Concomitant]
     Indication: CARDIAC DISORDER
  14. FLOMAX [Concomitant]
     Indication: BENIGN PROSTATIC HYPERPLASIA
  15. PROSCAR [Concomitant]
     Indication: BENIGN PROSTATIC HYPERPLASIA
  16. SKELAXIN [Concomitant]
     Indication: HYPOTONIA
  17. ZOLOFT [Concomitant]
     Indication: STRESS
  18. LORAZEPAM [Concomitant]
     Indication: INSOMNIA
  19. NEXIUM [Concomitant]
     Indication: ULCER
  20. LOSARTAN [Concomitant]
     Indication: HYPERTENSION

REACTIONS (12)
  - Joint swelling [Not Recovered/Not Resolved]
  - Pruritus [Not Recovered/Not Resolved]
  - Rash [Not Recovered/Not Resolved]
  - Erythema [Not Recovered/Not Resolved]
  - Drug administered at inappropriate site [Unknown]
  - Blood testosterone decreased [Unknown]
  - Application site pruritus [Unknown]
  - Application site irritation [Not Recovered/Not Resolved]
  - Dry mouth [Not Recovered/Not Resolved]
  - Pruritus [Not Recovered/Not Resolved]
  - Rash [Not Recovered/Not Resolved]
  - Prostatic specific antigen increased [Unknown]
